FAERS Safety Report 21044702 (Version 2)
Quarter: 2022Q3

REPORT INFORMATION
  Report Type: Spontaneous
  Country: US (occurrence: None)
  Receive Date: 20220705
  Receipt Date: 20220725
  Transmission Date: 20221027
  Serious: No
  Sender: FDA-Public Use
  Company Number: US-Eisai Medical Research-EC-2022-117215

PATIENT
  Age: 66 Year
  Sex: Female

DRUGS (3)
  1. FYCOMPA [Suspect]
     Active Substance: PERAMPANEL
     Indication: Epilepsy
     Route: 048
     Dates: start: 202205, end: 202206
  2. FYCOMPA [Suspect]
     Active Substance: PERAMPANEL
     Route: 048
     Dates: start: 202206, end: 202206
  3. FYCOMPA [Suspect]
     Active Substance: PERAMPANEL
     Route: 048
     Dates: start: 202206

REACTIONS (9)
  - Fall [Unknown]
  - Eye injury [Unknown]
  - Cognitive disorder [Unknown]
  - Memory impairment [Unknown]
  - Hand fracture [Unknown]
  - Skin laceration [Unknown]
  - Eye contusion [Unknown]
  - Therapeutic product effect decreased [Unknown]
  - Seizure [Unknown]

NARRATIVE: CASE EVENT DATE: 20220101
